FAERS Safety Report 5469718-6 (Version None)
Quarter: 2007Q3

REPORT INFORMATION
  Report Type: 
  Country: None (occurrence: None)
  Receive Date: 20070927
  Receipt Date: 20070919
  Transmission Date: 20080115
  Serious: Yes (Hospitalization)
  Sender: FDA-Public Use
  Company Number: JP-JNJFOC-20070904151

PATIENT
  Sex: Female
  Weight: 20 kg

DRUGS (4)
  1. REMICADE [Suspect]
     Route: 042
  2. REMICADE [Suspect]
     Indication: CHRONIC GRAFT VERSUS HOST DISEASE
     Route: 042
  3. NEORAL [Concomitant]
     Route: 048
  4. ONEALFA [Concomitant]
     Route: 048

REACTIONS (2)
  - ARTHRALGIA [None]
  - PYREXIA [None]
